FAERS Safety Report 14750399 (Version 1)
Quarter: 2018Q2

REPORT INFORMATION
  Report Type: Spontaneous
  Country: FR (occurrence: FR)
  Receive Date: 20180412
  Receipt Date: 20180412
  Transmission Date: 20180711
  Serious: Yes (Other)
  Sender: FDA-Public Use
  Company Number: FR-MERCK KGAA-2045629

PATIENT
  Age: 58 Year
  Sex: Male

DRUGS (1)
  1. NOVOTHYROX [Suspect]
     Active Substance: LEVOTHYROXINE SODIUM
     Indication: PRODUCT USED FOR UNKNOWN INDICATION

REACTIONS (23)
  - Insomnia [Recovering/Resolving]
  - Aggression [Recovering/Resolving]
  - Memory impairment [Recovering/Resolving]
  - Crying [Recovering/Resolving]
  - Stress at work [Recovering/Resolving]
  - Decreased interest [Recovering/Resolving]
  - Depressed mood [Recovering/Resolving]
  - Gamma-glutamyltransferase increased [None]
  - Chest discomfort [Recovering/Resolving]
  - Headache [Recovering/Resolving]
  - Weight decreased [Recovering/Resolving]
  - Disturbance in attention [Recovering/Resolving]
  - Marital problem [Recovering/Resolving]
  - Dizziness [Recovering/Resolving]
  - Loss of libido [Recovering/Resolving]
  - Alanine aminotransferase increased [Recovering/Resolving]
  - Suicidal ideation [Recovering/Resolving]
  - Anger [Recovering/Resolving]
  - Muscle spasms [Recovering/Resolving]
  - Depression [Recovering/Resolving]
  - Fatigue [Recovering/Resolving]
  - Arthralgia [Recovering/Resolving]
  - Impatience [Recovering/Resolving]

NARRATIVE: CASE EVENT DATE: 20170327
